FAERS Safety Report 6552672-3 (Version None)
Quarter: 2010Q1

REPORT INFORMATION
  Report Type: 
  Country: None (occurrence: None)
  Receive Date: 20100126
  Receipt Date: 20100115
  Transmission Date: 20100710
  Serious: Yes (Other)
  Sender: FDA-Public Use
  Company Number: B0617075A

PATIENT
  Age: 17 Year
  Sex: Male

DRUGS (18)
  1. RITUXIMAB [Suspect]
     Indication: BURKITT'S LYMPHOMA
     Route: 065
  2. DOXORUBICIN HCL [Suspect]
     Indication: BURKITT'S LYMPHOMA
     Route: 065
  3. VINCRISTINE [Suspect]
     Indication: BURKITT'S LYMPHOMA
     Route: 065
  4. PREDNISOLONE [Suspect]
     Indication: BURKITT'S LYMPHOMA
     Route: 065
  5. ARA-C [Suspect]
     Indication: BURKITT'S LYMPHOMA
     Route: 065
  6. ETOPOSIDE [Suspect]
     Indication: BURKITT'S LYMPHOMA
     Route: 065
  7. THIOGUANINE [Suspect]
     Indication: BURKITT'S LYMPHOMA
     Route: 065
  8. MERCAPTOPURINE [Suspect]
     Indication: BURKITT'S LYMPHOMA
     Route: 065
  9. METHOTREXATE [Suspect]
     Indication: BURKITT'S LYMPHOMA
     Route: 037
  10. TACROLIMUS [Suspect]
     Indication: IMMUNOSUPPRESSION
     Route: 065
  11. TACROLIMUS [Suspect]
     Route: 065
  12. ACYCLOVIR [Suspect]
     Indication: PROPHYLAXIS
     Route: 065
  13. CO-TRIMOXAZOLE [Suspect]
     Indication: PROPHYLAXIS
     Route: 065
  14. ITRACONAZOLE [Suspect]
     Indication: PROPHYLAXIS
     Route: 065
  15. DEXRAZOXANE [Suspect]
     Indication: DRUG USE FOR UNKNOWN INDICATION
     Route: 065
  16. CYCLOPHOSPHAMIDE [Concomitant]
  17. ONCOVIN [Concomitant]
  18. PREDNISONE [Concomitant]

REACTIONS (2)
  - NEUTROPENIA [None]
  - RENAL IMPAIRMENT [None]
